FAERS Safety Report 9882478 (Version 3)
Quarter: 2014Q1

REPORT INFORMATION
  Report Type: Report from Study
  Country: US (occurrence: US)
  Receive Date: 20140207
  Receipt Date: 20140227
  Transmission Date: 20141002
  Serious: Yes (Hospitalization)
  Sender: FDA-Public Use
  Company Number: US-SA-2014SA009504

PATIENT
  Age: 39 Year
  Sex: Female

DRUGS (1)
  1. AUBAGIO [Suspect]
     Indication: MULTIPLE SCLEROSIS
     Route: 048
     Dates: start: 20140120, end: 20140206

REACTIONS (8)
  - Chest pain [Unknown]
  - Feeling abnormal [Unknown]
  - Hypertension [Unknown]
  - Headache [Unknown]
  - Body temperature increased [Unknown]
  - Fatigue [Unknown]
  - Asthma [Unknown]
  - Paraesthesia [Unknown]
